FAERS Safety Report 19652854 (Version 1)
Quarter: 2021Q3

REPORT INFORMATION
  Report Type: Spontaneous
  Country: US (occurrence: US)
  Receive Date: 20210803
  Receipt Date: 20210803
  Transmission Date: 20211014
  Serious: Yes (Hospitalization)
  Sender: FDA-Public Use
  Company Number: None

PATIENT
  Age: 52 Year
  Sex: Female
  Weight: 114.1 kg

DRUGS (3)
  1. IMDEVIMAB. [Concomitant]
     Active Substance: IMDEVIMAB
     Dates: start: 20210713, end: 20210713
  2. CASIRIVIMAB. [Concomitant]
     Active Substance: CASIRIVIMAB
     Dates: start: 20210713, end: 20210713
  3. CASIRIVIMAB?IMDEVIMAB [Suspect]
     Active Substance: CASIRIVIMAB\IMDEVIMAB
     Indication: COVID-19
     Route: 041

REACTIONS (2)
  - Infusion related reaction [None]
  - Oxygen saturation decreased [None]

NARRATIVE: CASE EVENT DATE: 20210713
